FAERS Safety Report 7968823-X (Version None)
Quarter: 2011Q4

REPORT INFORMATION
  Report Type: 
  Country: None (occurrence: None)
  Receive Date: 20111209
  Receipt Date: 20111128
  Transmission Date: 20120403
  Serious: Yes (Hospitalization)
  Sender: FDA-Public Use
  Company Number: JP-JNJFOC-20111200547

PATIENT
  Age: 34 Year
  Sex: Male

DRUGS (10)
  1. PRIMPERAN TAB [Concomitant]
     Indication: ABDOMINAL DISCOMFORT
     Route: 048
     Dates: start: 20100903, end: 20100905
  2. MOTILIUM [Concomitant]
     Indication: ABDOMINAL DISCOMFORT
     Dates: start: 20100906, end: 20100924
  3. LEXIVA [Suspect]
     Route: 048
     Dates: start: 20100913, end: 20101014
  4. RITONAVIR [Suspect]
     Indication: HIV INFECTION
     Route: 048
     Dates: start: 20090205, end: 20101014
  5. TRUVADA [Suspect]
     Indication: HIV INFECTION
     Route: 048
     Dates: start: 20090205, end: 20101014
  6. PREZISTA [Suspect]
     Indication: HIV INFECTION
     Route: 048
     Dates: start: 20100903, end: 20100912
  7. LOPERAMIDE HCL [Concomitant]
     Indication: DIARRHOEA
     Route: 048
     Dates: start: 20100401, end: 20100602
  8. LOXONIN [Concomitant]
     Indication: HERPES ZOSTER
     Dates: start: 20100906, end: 20100913
  9. LEXIVA [Suspect]
     Indication: HIV INFECTION
     Route: 048
     Dates: start: 20090205, end: 20100902
  10. VALTREX [Concomitant]
     Indication: HERPES ZOSTER
     Route: 048
     Dates: start: 20100906, end: 20100913

REACTIONS (2)
  - GASTROINTESTINAL DISORDER [None]
  - HERPES ZOSTER [None]
